FAERS Safety Report 13745295 (Version 1)
Quarter: 2017Q3

REPORT INFORMATION
  Report Type: Spontaneous
  Country: US (occurrence: US)
  Receive Date: 20170711
  Receipt Date: 20170711
  Transmission Date: 20171127
  Serious: No
  Sender: FDA-Public Use
  Company Number: None

PATIENT
  Age: 51 Year
  Sex: Female

DRUGS (1)
  1. FORTEO [Suspect]
     Active Substance: TERIPARATIDE
     Route: 058
     Dates: start: 20170612

REACTIONS (6)
  - Back pain [None]
  - Fatigue [None]
  - Bone pain [None]
  - Abdominal pain [None]
  - Injection site urticaria [None]
  - Herpes zoster [None]

NARRATIVE: CASE EVENT DATE: 20170612
